FAERS Safety Report 5411297-3 (Version None)
Quarter: 2007Q3

REPORT INFORMATION
  Report Type: 
  Country: None (occurrence: None)
  Receive Date: 20070810
  Receipt Date: 20070802
  Transmission Date: 20080115
  Serious: Yes (Disabling)
  Sender: FDA-Public Use
  Company Number: NL-ROCHE-510161

PATIENT
  Age: 67 Year
  Sex: Female
  Weight: 49 kg

DRUGS (1)
  1. BONIVA [Suspect]
     Indication: OSTEOPOROSIS
     Route: 065
     Dates: start: 20070401, end: 20070618

REACTIONS (3)
  - ABDOMINAL PAIN [None]
  - BACK PAIN [None]
  - GROIN PAIN [None]
